FAERS Safety Report 23761581 (Version 1)
Quarter: 2024Q2

REPORT INFORMATION
  Report Type: Spontaneous
  Country: US (occurrence: None)
  Receive Date: 20240418
  Receipt Date: 20240418
  Transmission Date: 20240716
  Serious: Yes (Other)
  Sender: FDA-Public Use
  Company Number: None

PATIENT
  Age: 40 Year
  Sex: Female

DRUGS (1)
  1. XDEMVY [Suspect]
     Active Substance: LOTILANER
     Indication: Demodex blepharitis
     Dosage: 1DROPP BID OPHTHALMIC
     Dates: start: 20240404

REACTIONS (3)
  - Eye pruritus [None]
  - Eye discharge [None]
  - Swelling of eyelid [None]

NARRATIVE: CASE EVENT DATE: 20240404
